FAERS Safety Report 9758456 (Version 1)
Quarter: 2013Q4

REPORT INFORMATION
  Report Type: Spontaneous
  Country: US (occurrence: None)
  Receive Date: 20131216
  Receipt Date: 20131216
  Transmission Date: 20140711
  Serious: No
  Sender: FDA-Public Use
  Company Number: CABO-13002474

PATIENT
  Age: 61 Year
  Sex: Female
  Weight: 64 kg

DRUGS (1)
  1. COMETRIQ (CABOZANTINIB) [Suspect]
     Indication: THYROID CANCER
     Dosage: 140 MG, QD, ORAL?100 MG, QD, ORAL

REACTIONS (7)
  - Acne [None]
  - Stomatitis [None]
  - Oral discomfort [None]
  - Pain in extremity [None]
  - Glossodynia [None]
  - Gingival pain [None]
  - Alopecia [None]
